FAERS Safety Report 11397088 (Version 2)
Quarter: 2015Q4

REPORT INFORMATION
  Report Type: Spontaneous
  Country: US (occurrence: US)
  Receive Date: 20150819
  Receipt Date: 20151215
  Transmission Date: 20160304
  Serious: No
  Sender: FDA-Public Use
  Company Number: US-CELGENEUS-USA-2015070583

PATIENT
  Sex: Female

DRUGS (1)
  1. OTEZLA [Suspect]
     Active Substance: APREMILAST
     Indication: PSORIATIC ARTHROPATHY
     Dosage: 30 MILLIGRAM
     Route: 048
     Dates: start: 20150515

REACTIONS (6)
  - Diarrhoea [Unknown]
  - Feeling abnormal [Unknown]
  - Headache [Unknown]
  - Agitation [Unknown]
  - Arthropathy [Unknown]
  - Abdominal pain [Unknown]
